FAERS Safety Report 12432617 (Version 1)
Quarter: 2016Q2

REPORT INFORMATION
  Report Type: Spontaneous
  Country: US (occurrence: US)
  Receive Date: 20160603
  Receipt Date: 20160603
  Transmission Date: 20160815
  Serious: No
  Sender: FDA-Public Use
  Company Number: US-BAYER-2016-101993

PATIENT
  Sex: Female

DRUGS (2)
  1. FINACEA [Suspect]
     Active Substance: AZELAIC ACID
     Indication: ACNE
     Dosage: 1 DF, QD
     Route: 061
  2. RETIN-A [Concomitant]
     Active Substance: TRETINOIN

REACTIONS (3)
  - Maternal exposure during pregnancy [None]
  - Product use issue [None]
  - Dry skin [None]
